FAERS Safety Report 9675719 (Version 1)
Quarter: 2013Q4

REPORT INFORMATION
  Report Type: Report from Study
  Country: US (occurrence: US)
  Receive Date: 20131107
  Receipt Date: 20131107
  Transmission Date: 20140711
  Serious: Yes (Other)
  Sender: FDA-Public Use
  Company Number: US-ABBVIE-13P-163-1163448-00

PATIENT
  Sex: Male
  Weight: 97.61 kg

DRUGS (17)
  1. HUMIRA [Suspect]
     Indication: RHEUMATOID ARTHRITIS
  2. CORTISONE [Suspect]
     Indication: NERVE COMPRESSION
  3. LANTUS [Concomitant]
     Indication: DIABETES MELLITUS
  4. APIDRA [Concomitant]
     Indication: DIABETES MELLITUS
  5. DURAGESIC [Concomitant]
     Indication: PAIN
  6. LAMICTAL [Concomitant]
     Indication: NEURALGIA
  7. LAMICTAL [Concomitant]
     Indication: CONVULSION
  8. PEPCID [Concomitant]
     Indication: GASTRIC DISORDER
  9. FLOMAX [Concomitant]
     Indication: BENIGN PROSTATIC HYPERPLASIA
  10. KLONOPIN [Concomitant]
     Indication: SLEEP APNOEA SYNDROME
  11. LIPITOR [Concomitant]
     Indication: BLOOD CHOLESTEROL ABNORMAL
  12. EFFEXOR [Concomitant]
     Indication: ANXIETY
  13. ZOLOFT [Concomitant]
     Indication: PANIC ATTACK
  14. NORVASC [Concomitant]
     Indication: BLOOD PRESSURE
  15. ASPIRIN [Concomitant]
     Indication: CARDIAC DISORDER
  16. MULTIPLE VITAMINS [Concomitant]
     Indication: VITAMIN SUPPLEMENTATION
  17. MOTILIUM [Concomitant]
     Indication: NAUSEA

REACTIONS (5)
  - Eye haemorrhage [Recovering/Resolving]
  - Diabetic retinopathy [Not Recovered/Not Resolved]
  - Injection site pain [Not Recovered/Not Resolved]
  - Blood glucose abnormal [Not Recovered/Not Resolved]
  - Nerve compression [Not Recovered/Not Resolved]
